FAERS Safety Report 8326651-X (Version None)
Quarter: 2012Q2

REPORT INFORMATION
  Report Type: 
  Country: None (occurrence: None)
  Receive Date: 20120501
  Receipt Date: 20101203
  Transmission Date: 20120825
  Serious: No
  Sender: FDA-Public Use
  Company Number: US-TEVA-2009008534

PATIENT
  Sex: Male
  Weight: 87.168 kg

DRUGS (15)
  1. SPIRIVA [Concomitant]
  2. VITAMIN D [Concomitant]
     Dates: start: 20060101
  3. NUVIGIL [Suspect]
     Indication: SLEEP APNOEA SYNDROME
  4. ALBUTEROL [Concomitant]
  5. TUSSIONEX [Concomitant]
     Indication: COUGH
  6. CALCIUM WITH D [Concomitant]
  7. MULTI-VITAMIN [Concomitant]
  8. NUVIGIL [Suspect]
     Indication: NARCOLEPSY
     Dosage: 150 MILLIGRAM;
     Route: 048
     Dates: start: 20090706
  9. SUCRALFATE [Concomitant]
  10. OMEPRAZOLE [Concomitant]
     Dates: start: 20050101
  11. TRIAMTERENE AND HYDROCHLOROTHIAZIDE [Concomitant]
     Dates: start: 20050101
  12. CHOLECALCIFEROL [Concomitant]
     Dates: start: 20080101
  13. IBUPROFEN [Concomitant]
  14. FOSAMAX [Concomitant]
     Indication: OSTEOPOROSIS
  15. MELATONIN [Concomitant]
     Dates: start: 19990101

REACTIONS (1)
  - DRUG INEFFECTIVE [None]
